FAERS Safety Report 11131585 (Version 6)
Quarter: 2016Q2

REPORT INFORMATION
  Report Type: Report from Study
  Country: JP (occurrence: JP)
  Receive Date: 20150522
  Receipt Date: 20160502
  Transmission Date: 20160815
  Serious: Yes (Life-Threatening, Hospitalization, Other)
  Sender: FDA-Public Use
  Company Number: JP-BRISTOL-MYERS SQUIBB COMPANY-BMS-2015-031467

PATIENT
  Age: 83 Year
  Sex: Male

DRUGS (20)
  1. NIVOLUMAB [Suspect]
     Active Substance: NIVOLUMAB
     Dosage: 2 MG/KG, QD
     Route: 041
     Dates: start: 2015, end: 2015
  2. NIVOLUMAB [Suspect]
     Active Substance: NIVOLUMAB
     Dosage: 15 MG, UNK
     Route: 048
     Dates: start: 20150509
  3. RINDERON                           /00008501/ [Suspect]
     Active Substance: BETAMETHASONE
     Dosage: 3 MG, QD
     Route: 048
     Dates: start: 201505, end: 201505
  4. NIVOLUMAB [Suspect]
     Active Substance: NIVOLUMAB
     Dosage: 2 UNK, UNK
     Route: 041
     Dates: start: 201505, end: 201505
  5. NIVOLUMAB [Suspect]
     Active Substance: NIVOLUMAB
     Dosage: 20 MG, UNK
     Route: 041
     Dates: start: 20150508, end: 20150508
  6. RINDERON                           /00008501/ [Suspect]
     Active Substance: BETAMETHASONE
     Indication: PRODUCT USED FOR UNKNOWN INDICATION
     Dosage: 6 MG, QD
     Route: 048
     Dates: start: 201504, end: 201504
  7. NIVOLUMAB [Suspect]
     Active Substance: NIVOLUMAB
     Dosage: 2 MG/KG, QD
     Route: 041
  8. NIVOLUMAB [Suspect]
     Active Substance: NIVOLUMAB
     Dosage: 2 MG/KG, QD
     Route: 041
  9. NIVOLUMAB [Suspect]
     Active Substance: NIVOLUMAB
     Dosage: 2 UNK, UNK
     Route: 041
     Dates: start: 201505
  10. NIVOLUMAB [Suspect]
     Active Substance: NIVOLUMAB
     Dosage: 2 MG/KG, QD
     Route: 041
  11. NIVOLUMAB [Suspect]
     Active Substance: NIVOLUMAB
     Dosage: 2 MG/KG, QD
     Route: 041
  12. RINDERON                           /00008501/ [Suspect]
     Active Substance: BETAMETHASONE
     Dosage: 4 MG, QD
     Route: 048
     Dates: start: 20150430
  13. PREDNISOLONE. [Suspect]
     Active Substance: PREDNISOLONE
     Dosage: 20 MG, UNK
     Route: 048
     Dates: start: 20150509
  14. NIVOLUMAB [Suspect]
     Active Substance: NIVOLUMAB
     Indication: MALIGNANT MELANOMA
     Dosage: 2 MG/KG, QD
     Route: 041
     Dates: start: 20141002, end: 20150330
  15. NIVOLUMAB [Suspect]
     Active Substance: NIVOLUMAB
     Dosage: 2 MG/KG, QD
     Route: 041
  16. NIVOLUMAB [Suspect]
     Active Substance: NIVOLUMAB
     Dosage: 2 MG/KG, QD
     Route: 041
  17. RINDERON                           /00008501/ [Suspect]
     Active Substance: BETAMETHASONE
     Dosage: 2 MG, QD
     Route: 048
     Dates: start: 201505
  18. NIVOLUMAB [Suspect]
     Active Substance: NIVOLUMAB
     Dosage: 2 MG/KG, QD
     Route: 041
  19. NIVOLUMAB [Suspect]
     Active Substance: NIVOLUMAB
     Dosage: 2 MG/KG, QD
     Route: 041
     Dates: start: 20150330, end: 20150330
  20. PREDNISOLONE. [Suspect]
     Active Substance: PREDNISOLONE
     Indication: PRODUCT USED FOR UNKNOWN INDICATION
     Dosage: 20 MG, UNK
     Route: 048
     Dates: start: 20150508, end: 20150508

REACTIONS (8)
  - Pyrexia [Recovering/Resolving]
  - Pneumocystis jirovecii pneumonia [Recovered/Resolved]
  - Tri-iodothyronine decreased [Not Recovered/Not Resolved]
  - Blood thyroid stimulating hormone increased [Recovered/Resolved]
  - Aspartate aminotransferase increased [Recovered/Resolved]
  - C-reactive protein increased [Recovering/Resolving]
  - Blood pressure decreased [Recovered/Resolved]
  - Alanine aminotransferase increased [Recovered/Resolved]

NARRATIVE: CASE EVENT DATE: 20150420
